FAERS Safety Report 19492874 (Version 1)
Quarter: 2021Q3

REPORT INFORMATION
  Report Type: Spontaneous
  Country: US (occurrence: US)
  Receive Date: 20210705
  Receipt Date: 20210705
  Transmission Date: 20211014
  Serious: Yes (Hospitalization, Other)
  Sender: FDA-Public Use
  Company Number: US-SUN PHARMACEUTICAL INDUSTRIES LTD-2021R1-302034

PATIENT
  Age: 57 Year
  Sex: Male

DRUGS (4)
  1. AZTREONAM. [Concomitant]
     Active Substance: AZTREONAM
     Indication: STAPHYLOCOCCAL INFECTION
     Dosage: UNK
     Route: 065
  2. ALBUTEROL. [Concomitant]
     Active Substance: ALBUTEROL
     Indication: STAPHYLOCOCCAL INFECTION
     Dosage: UNK
     Route: 065
  3. TOBRAMYCIN. [Suspect]
     Active Substance: TOBRAMYCIN
     Indication: STAPHYLOCOCCAL INFECTION
     Dosage: 300 MILLIGRAM, BID
  4. ELEXA/TEZ/IVA [Concomitant]
     Indication: IMMUNOMODULATORY THERAPY
     Dosage: UNK
     Route: 065

REACTIONS (2)
  - Acute kidney injury [Recovering/Resolving]
  - Balance disorder [Unknown]
